FAERS Safety Report 23577016 (Version 2)
Quarter: 2024Q1

REPORT INFORMATION
  Report Type: Spontaneous
  Country: US (occurrence: US)
  Receive Date: 20240228
  Receipt Date: 20240305
  Transmission Date: 20240410
  Serious: Yes (Other)
  Sender: FDA-Public Use
  Company Number: None

PATIENT
  Age: 63 Year
  Sex: Male

DRUGS (13)
  1. CARVEDILOL [Suspect]
     Active Substance: CARVEDILOL
     Dosage: DECREASED
  2. CARVEDILOL [Suspect]
     Active Substance: CARVEDILOL
     Indication: Left ventricular failure
  3. CARVEDILOL [Suspect]
     Active Substance: CARVEDILOL
  4. CARVEDILOL [Suspect]
     Active Substance: CARVEDILOL
     Dosage: REDUCED
  5. SPIRONOLACTONE [Interacting]
     Active Substance: SPIRONOLACTONE
     Indication: Left ventricular failure
  6. SPIRONOLACTONE [Interacting]
     Active Substance: SPIRONOLACTONE
  7. SACUBITRIL\VALSARTAN [Interacting]
     Active Substance: SACUBITRIL\VALSARTAN
     Dosage: 49/51 MG TWICE DAILY
  8. SACUBITRIL\VALSARTAN [Interacting]
     Active Substance: SACUBITRIL\VALSARTAN
     Indication: Left ventricular failure
     Dosage: 97/103MG TWICE DAILY
  9. TIRZEPATIDE [Interacting]
     Active Substance: TIRZEPATIDE
     Indication: Weight decreased
  10. TIRZEPATIDE [Interacting]
     Active Substance: TIRZEPATIDE
     Indication: Weight control
     Dosage: TITRATED BY 2.5 MG/WEEK EVERY 4 WEEKS UP TO 12.5 MG ONCE WEEKLY
  11. TIRZEPATIDE [Interacting]
     Active Substance: TIRZEPATIDE
  12. TIRZEPATIDE [Interacting]
     Active Substance: TIRZEPATIDE
  13. TIRZEPATIDE [Interacting]
     Active Substance: TIRZEPATIDE

REACTIONS (7)
  - Orthostatic hypotension [Recovering/Resolving]
  - Drug interaction [Recovered/Resolved]
  - Presyncope [Unknown]
  - Blood creatinine increased [Recovering/Resolving]
  - Heart rate increased [Recovered/Resolved]
  - Orthostatic hypotension [Recovering/Resolving]
  - Presyncope [Unknown]
